FAERS Safety Report 25713875 (Version 1)
Quarter: 2025Q3

REPORT INFORMATION
  Report Type: Spontaneous
  Country: QA (occurrence: QA)
  Receive Date: 20250822
  Receipt Date: 20250822
  Transmission Date: 20251021
  Serious: Yes (Other)
  Sender: NOVITIUM PHARMA
  Company Number: QA-NOVITIUMPHARMA-2025QANVP02088

PATIENT

DRUGS (4)
  1. ACYCLOVIR [Suspect]
     Active Substance: ACYCLOVIR
     Indication: Encephalitis viral
     Route: 042
  2. ACYCLOVIR [Suspect]
     Active Substance: ACYCLOVIR
     Indication: Meningitis
  3. ACYCLOVIR [Suspect]
     Active Substance: ACYCLOVIR
     Indication: Encephalitis viral
  4. ACYCLOVIR [Suspect]
     Active Substance: ACYCLOVIR
     Indication: Meningitis

REACTIONS (4)
  - Neurotoxicity [Unknown]
  - Agitation [Unknown]
  - Confusional state [Unknown]
  - Coma scale abnormal [Unknown]
